FAERS Safety Report 7759775-6 (Version None)
Quarter: 2011Q3

REPORT INFORMATION
  Report Type: 
  Country: None (occurrence: None)
  Receive Date: 20110915
  Receipt Date: 20110907
  Transmission Date: 20111222
  Serious: Yes (Other)
  Sender: FDA-Public Use
  Company Number: IMP_05424_2011

PATIENT
  Age: 75 Year
  Sex: Male

DRUGS (2)
  1. DIGOXIN [Suspect]
     Indication: ATRIAL FIBRILLATION
     Dosage: (DF)
  2. AMIODARONE HCL [Suspect]
     Indication: ATRIAL FIBRILLATION
     Dosage: (DF)

REACTIONS (6)
  - SINUS ARREST [None]
  - HEART RATE DECREASED [None]
  - FEELING ABNORMAL [None]
  - ELECTROCARDIOGRAM ST-T SEGMENT ABNORMAL [None]
  - SUPRAVENTRICULAR EXTRASYSTOLES [None]
  - BUNDLE BRANCH BLOCK LEFT [None]
